FAERS Safety Report 4294543-1 (Version None)
Quarter: 2004Q1

REPORT INFORMATION
  Report Type: 
  Country: None (occurrence: None)
  Receive Date: 20040213
  Receipt Date: 20040205
  Transmission Date: 20041129
  Serious: Yes (Death, Hospitalization)
  Sender: FDA-Public Use
  Company Number: PHRM2004FR00733

PATIENT
  Age: 54 Year
  Sex: Female

DRUGS (7)
  1. TAREG [Suspect]
     Dosage: 40 MG, QD
     Route: 048
     Dates: end: 20040112
  2. TAREG [Suspect]
     Dosage: 80 MG, QD
     Route: 048
     Dates: start: 20040112
  3. TEMESTA [Suspect]
     Route: 048
  4. NORSET [Suspect]
     Dosage: 30 MG, QD
     Route: 048
     Dates: start: 20040112
  5. XANAX [Suspect]
     Dosage: .5 MG, QID
     Route: 048
     Dates: start: 20040112
  6. LEVOTHYROX [Suspect]
     Dosage: 75 UG, QD
     Route: 048
  7. DAFLON [Suspect]
     Dosage: 500 MG, BID
     Route: 048
     Dates: start: 20040112

REACTIONS (3)
  - AGITATION [None]
  - DEATH [None]
  - SELF MUTILATION [None]
